FAERS Safety Report 19984917 (Version 1)
Quarter: 2021Q4

REPORT INFORMATION
  Report Type: Spontaneous
  Country: US (occurrence: US)
  Receive Date: 20211022
  Receipt Date: 20211022
  Transmission Date: 20220303
  Serious: No
  Sender: FDA-Public Use
  Company Number: US-PFIZER INC-202101356413

PATIENT
  Sex: Male
  Weight: 96.15 kg

DRUGS (1)
  1. GLUCOTROL [Suspect]
     Active Substance: GLIPIZIDE
     Dosage: 2.5 MG, 1X/DAY
     Route: 048
     Dates: start: 2016, end: 20210614

REACTIONS (1)
  - Hypoglycaemia [Not Recovered/Not Resolved]

NARRATIVE: CASE EVENT DATE: 20210514
